FAERS Safety Report 8553621 (Version 2)
Quarter: 2013Q1

REPORT INFORMATION
  Report Type: Spontaneous
  Country: US (occurrence: US)
  Receive Date: 20120509
  Receipt Date: 20130312
  Transmission Date: 20140127
  Serious: Yes (Hospitalization)
  Sender: FDA-Public Use
  Company Number: PHHY2012US037890

PATIENT
  Age: 39 Year
  Sex: Male

DRUGS (5)
  1. DOXYCYCLINE [Suspect]
     Dosage: 100 MG, BID
     Route: 048
  2. TEMAZEPAM [Suspect]
     Dosage: 30 MG AT NIGHT
     Route: 048
  3. ARIPIPRAZOLE [Suspect]
     Indication: PSYCHOTIC DISORDER
     Dosage: 2.5 MG, BID
     Route: 048
  4. ARIPIPRAZOLE [Suspect]
     Dosage: 7.5 MG, UNK
  5. VALPROIC ACID [Suspect]
     Indication: AGGRESSION
     Dosage: 250 MG, TID
     Route: 048

REACTIONS (6)
  - Catatonia [Recovered/Resolved]
  - Staring [Recovered/Resolved]
  - Mutism [Recovered/Resolved]
  - Stereotypy [Recovered/Resolved]
  - Negativism [Recovered/Resolved]
  - Blood creatine phosphokinase increased [Recovered/Resolved]
